FAERS Safety Report 8414903-4 (Version None)
Quarter: 2012Q2

REPORT INFORMATION
  Report Type: 
  Country: None (occurrence: None)
  Receive Date: 20120601
  Receipt Date: 20120601
  Transmission Date: 20120825
  Serious: No
  Sender: FDA-Public Use
  Company Number: None

PATIENT
  Sex: Male
  Weight: 59.4212 kg

DRUGS (1)
  1. CITALOPRAM [Suspect]
     Indication: DEPRESSION
     Dosage: 20MG QD BY MOUTH
     Route: 048
     Dates: start: 20091001, end: 20120401

REACTIONS (1)
  - DRUG INEFFECTIVE [None]
